FAERS Safety Report 18683660 (Version 1)
Quarter: 2020Q4

REPORT INFORMATION
  Report Type: Spontaneous
  Country: US (occurrence: US)
  Receive Date: 20201230
  Receipt Date: 20201230
  Transmission Date: 20210114
  Serious: Yes (Hospitalization, Other)
  Sender: FDA-Public Use
  Company Number: US-NOVAST LABORATORIES LTD.-2020NOV000352

PATIENT
  Age: 41 Year
  Sex: Male

DRUGS (6)
  1. IRINOTECAN HYDROCHLORIDE. [Suspect]
     Active Substance: IRINOTECAN HYDROCHLORIDE
     Indication: ADENOCARCINOMA OF COLON
     Dosage: UNK UNKNOWN, EVERY 2 WEEKS, 11 CYCLES TOTAL
     Route: 065
  2. OXALIPLATIN. [Suspect]
     Active Substance: OXALIPLATIN
     Indication: ADENOCARCINOMA OF COLON
     Dosage: UNK UNKNOWN, EVERY 2 WEEKS, 11 CYCLES TOTAL
     Route: 065
  3. CETUXIMAB. [Concomitant]
     Active Substance: CETUXIMAB
     Indication: METASTASES TO LIVER
  4. IRINOTECAN HYDROCHLORIDE. [Suspect]
     Active Substance: IRINOTECAN HYDROCHLORIDE
     Indication: METASTASES TO LIVER
  5. OXALIPLATIN. [Suspect]
     Active Substance: OXALIPLATIN
     Indication: METASTASES TO LIVER
  6. CETUXIMAB. [Concomitant]
     Active Substance: CETUXIMAB
     Indication: ADENOCARCINOMA OF COLON
     Dosage: UNK UNKNOWN, EVERY 2 WEEKS, 11 CYCLES TOTAL
     Route: 065

REACTIONS (2)
  - Pneumonia [Unknown]
  - Respiratory failure [Unknown]
